FAERS Safety Report 11728264 (Version 1)
Quarter: 2015Q4

REPORT INFORMATION
  Report Type: Spontaneous
  Country: US (occurrence: US)
  Receive Date: 20151110
  Receipt Date: 20151110
  Transmission Date: 20160304
  Serious: No
  Sender: FDA-Public Use
  Company Number: US-ELI_LILLY_AND_COMPANY-US201111009017

PATIENT
  Sex: Female

DRUGS (1)
  1. FORTEO [Suspect]
     Active Substance: TERIPARATIDE
     Indication: OSTEOPOROSIS

REACTIONS (8)
  - Exostosis [Unknown]
  - Contusion [Unknown]
  - Asthenia [Unknown]
  - Arthralgia [Unknown]
  - Plantar fasciitis [Unknown]
  - Pruritus [Unknown]
  - Weight increased [Unknown]
  - Dizziness [Unknown]
